FAERS Safety Report 7163851-9 (Version None)
Quarter: 2010Q4

REPORT INFORMATION
  Report Type: 
  Country: None (occurrence: None)
  Receive Date: 20101215
  Receipt Date: 20100622
  Transmission Date: 20110411
  Serious: Yes (Other)
  Sender: FDA-Public Use
  Company Number: US-PFIZER INC-2010078574

PATIENT
  Sex: Female
  Weight: 68.027 kg

DRUGS (11)
  1. LYRICA [Suspect]
     Indication: NEUROPATHY PERIPHERAL
     Dosage: UNK
     Dates: start: 20091201, end: 20091201
  2. LYRICA [Suspect]
     Indication: BURNING SENSATION
  3. LYRICA [Suspect]
     Indication: HYPOAESTHESIA
  4. TOPROL-XL [Concomitant]
     Indication: HYPERTENSION
     Dosage: 100 MG, 1X/DAY
  5. DILANTIN [Concomitant]
     Indication: CONVULSION
     Dosage: 400 MG, UNK
     Dates: start: 20060101, end: 20100601
  6. TOPAMAX [Concomitant]
     Indication: CONVULSION
     Dosage: UNK
  7. SOMA [Concomitant]
     Dosage: 350 MG, 2X/DAY
  8. LASIX [Concomitant]
     Indication: DYSURIA
     Dosage: 40 MG, 1X/DAY
  9. XANAX [Concomitant]
     Dosage: 0.5 MG, 2X/DAY
  10. CYMBALTA [Concomitant]
     Dosage: 60 MG, 2X/DAY
  11. VITAMIN D [Concomitant]
     Indication: VITAMIN D DEFICIENCY
     Dosage: UNK

REACTIONS (6)
  - DYSPHAGIA [None]
  - HYPERSENSITIVITY [None]
  - LIP SWELLING [None]
  - NEUROPATHY PERIPHERAL [None]
  - PRURITUS [None]
  - WEIGHT DECREASED [None]
